FAERS Safety Report 22156628 (Version 1)
Quarter: 2023Q1

REPORT INFORMATION
  Report Type: Spontaneous
  Country: US (occurrence: None)
  Receive Date: 20230329
  Receipt Date: 20230329
  Transmission Date: 20230417
  Serious: No
  Sender: FDA-Public Use
  Company Number: None

PATIENT
  Age: 48 Year
  Sex: Female
  Weight: 72.57 kg

DRUGS (25)
  1. LENALIDOMIDE [Suspect]
     Active Substance: LENALIDOMIDE
     Indication: Plasma cell myeloma
     Dosage: 25MG 14D OF 28DAYS ORAL?
     Route: 048
  2. ACYCLOVIR [Concomitant]
  3. ASPIRIN [Concomitant]
  4. BUSPIRONE [Concomitant]
  5. CETIRIZINE [Concomitant]
  6. CYCLOBENZAPRINE [Concomitant]
  7. DARZALEX [Concomitant]
  8. DEXAMETHASONE [Concomitant]
  9. DULCOLAX [Concomitant]
  10. DULOXETINE [Concomitant]
  11. ERGOCALCIFEROL [Concomitant]
  12. FENTANYL [Concomitant]
  13. FUROSEMIDE [Concomitant]
  14. NORCO [Concomitant]
  15. MECLIZINE [Concomitant]
  16. NALOXONE [Concomitant]
  17. OMEPRAZOLE [Concomitant]
  18. ONDANSETRON [Concomitant]
  19. POTASSIUM CHLORIDE ER [Concomitant]
  20. PREGABALIN [Concomitant]
  21. PROCHLORPERAZINE [Concomitant]
  22. SIMETHICONE [Concomitant]
  23. SPIRONOLACTONE [Concomitant]
  24. VELCADE [Concomitant]
  25. ZOLPIDEM [Concomitant]

REACTIONS (1)
  - COVID-19 [None]
